FAERS Safety Report 18539742 (Version 1)
Quarter: 2020Q4

REPORT INFORMATION
  Report Type: Spontaneous
  Country: CN (occurrence: CN)
  Receive Date: 20201124
  Receipt Date: 20201124
  Transmission Date: 20210114
  Serious: Yes (Hospitalization, Other)
  Sender: FDA-Public Use
  Company Number: CN-009507513-2011CHN012102

PATIENT
  Age: 61 Year
  Sex: Male
  Weight: 56.5 kg

DRUGS (7)
  1. GEMCITABINE. [Concomitant]
     Active Substance: GEMCITABINE
     Indication: NEOPLASM MALIGNANT
     Dosage: UNK UNK, CYCLICAL
     Dates: start: 20190331, end: 20190830
  2. KEYTRUDA [Suspect]
     Active Substance: PEMBROLIZUMAB
     Dosage: UNK
     Dates: start: 20200430, end: 20201022
  3. NEDAPLATIN [Concomitant]
     Active Substance: NEDAPLATIN
     Indication: NEOPLASM MALIGNANT
     Dosage: 60 MILLIGRAM, DAY 1 AND DAY 2 (D1.2)
     Dates: start: 20190331, end: 20190830
  4. RECOMBINANT HUMAN ENDOSTATIN [Concomitant]
     Active Substance: ENDOSTATIN
     Dosage: 210 MILLIGRAM
     Dates: start: 20190331, end: 20190830
  5. KEYTRUDA [Suspect]
     Active Substance: PEMBROLIZUMAB
     Indication: NEOPLASM MALIGNANT
     Dosage: 200 MILLIGRAM, ONCE PER 21 DAYS (Q3W) FOR 6 CYCLES
     Route: 041
     Dates: start: 20190331, end: 202002
  6. IBANDRONATE SODIUM. [Concomitant]
     Active Substance: IBANDRONATE SODIUM
     Indication: METASTASES TO BONE
  7. ANLOTINIB HYDROCHLORIDE [Concomitant]
     Active Substance: CATEQUENTINIB DIHYDROCHLORIDE
     Indication: NEOPLASM MALIGNANT
     Dosage: 12 MILLIGRAM, ONCE PER DAY (QD)
     Route: 048
     Dates: start: 20200430, end: 20201026

REACTIONS (20)
  - Sleep disorder [Unknown]
  - Inappropriate schedule of product administration [Unknown]
  - Nasopharyngitis [Recovering/Resolving]
  - Arthralgia [Unknown]
  - Hyperhidrosis [Recovering/Resolving]
  - Dyspnoea exertional [Unknown]
  - Adrenal insufficiency [Recovering/Resolving]
  - Endocrine test abnormal [Unknown]
  - Cough [Recovering/Resolving]
  - Therapy partial responder [Unknown]
  - Cough [Unknown]
  - Asthenia [Unknown]
  - Pyrexia [Recovering/Resolving]
  - Mouth ulceration [Recovering/Resolving]
  - Tumour pain [Unknown]
  - Malignant neoplasm progression [Unknown]
  - Immune-mediated hypothyroidism [Recovering/Resolving]
  - Productive cough [Recovering/Resolving]
  - Asthenia [Recovering/Resolving]
  - Radiation oesophagitis [Unknown]

NARRATIVE: CASE EVENT DATE: 2020
